FAERS Safety Report 12838883 (Version 1)
Quarter: 2016Q4

REPORT INFORMATION
  Report Type: Spontaneous
  Country: US (occurrence: US)
  Receive Date: 20161010
  Receipt Date: 20161010
  Transmission Date: 20170207
  Serious: No
  Sender: FDA-Public Use
  Company Number: None

PATIENT
  Age: 31 Year
  Sex: Female
  Weight: 58.5 kg

DRUGS (1)
  1. NEILMED SINUS RINSE [Suspect]
     Active Substance: SODIUM BICARBONATE\SODIUM CHLORIDE
     Indication: PARANASAL SINUS DISCOMFORT
     Dosage: ?          QUANTITY:1 OUNCE(S);OTHER ROUTE:UP NOSE?
     Route: 045
     Dates: start: 20161009, end: 20161009

REACTIONS (3)
  - Burning sensation [None]
  - Eye swelling [None]
  - Urticaria [None]

NARRATIVE: CASE EVENT DATE: 20161010
